FAERS Safety Report 8669664 (Version 2)
Quarter: 2012Q4

REPORT INFORMATION
  Report Type: 
  Country: US (occurrence: US)
  Receive Date: 20120718
  Receipt Date: 20121015
  Transmission Date: 20130627
  Serious: Yes (Hospitalization, Other)
  Sender: FDA-Public Use
  Company Number: US-BAYER-2012-070984

PATIENT
  Age: 21 Year
  Sex: Female
  Weight: 122.45 kg

DRUGS (9)
  1. YAZ [Suspect]
     Indication: CONTRACEPTION
  2. YASMIN [Suspect]
     Indication: CONTRACEPTION
     Dosage: UNK
     Dates: start: 20100227, end: 20100803
  3. AMLODIPINE [Concomitant]
     Dosage: 10 mg, daily
  4. CORTOMYCIN [BACITRACIN ZN+,HYDROCORT ACET,NEOMYC SULF,POLYMYX B SU [Concomitant]
     Dosage: UNK, QID
     Route: 031
  5. NICOTINE PATCH [Concomitant]
     Dosage: UNK
  6. DILAUDID [Concomitant]
     Dosage: 1 mg, UNK
     Route: 042
     Dates: start: 20100519
  7. ZOFRAN [Concomitant]
     Dosage: 4 mg, UNK
     Route: 042
     Dates: start: 20100519
  8. UNASYN [Concomitant]
     Dosage: 3 mg, UNK
     Route: 042
     Dates: start: 20100519
  9. PERCOCET [Concomitant]
     Dosage: 5/325 mg, 1 every four to six hours as needed
     Dates: start: 20100519

REACTIONS (15)
  - Pulmonary embolism [None]
  - Cholecystectomy [None]
  - Injury [None]
  - Pain [None]
  - Fear [None]
  - Pain [None]
  - Chest pain [None]
  - Dyspnoea [None]
  - Haemoptysis [None]
  - Dizziness [None]
  - Pyrexia [None]
  - Respiratory tract congestion [None]
  - Oropharyngeal pain [None]
  - Hypoaesthesia [None]
  - Anxiety [None]
